FAERS Safety Report 17232598 (Version 3)
Quarter: 2020Q2

REPORT INFORMATION
  Report Type: Spontaneous
  Country: US (occurrence: US)
  Receive Date: 20200103
  Receipt Date: 20200413
  Transmission Date: 20200713
  Serious: No
  Sender: FDA-Public Use
  Company Number: US-PFIZER INC-2019562338

PATIENT
  Age: 57 Year
  Sex: Male

DRUGS (1)
  1. INSPRA [Suspect]
     Active Substance: EPLERENONE
     Dosage: 50 MG, 2X/DAY
     Route: 048

REACTIONS (7)
  - Dyspnoea [Not Recovered/Not Resolved]
  - Gait disturbance [Unknown]
  - Balance disorder [Unknown]
  - Back disorder [Unknown]
  - Respiratory disorder [Not Recovered/Not Resolved]
  - Fatigue [Unknown]
  - Musculoskeletal pain [Not Recovered/Not Resolved]
